FAERS Safety Report 13878990 (Version 1)
Quarter: 2017Q3

REPORT INFORMATION
  Report Type: Spontaneous
  Country: FR (occurrence: FR)
  Receive Date: 20170817
  Receipt Date: 20170817
  Transmission Date: 20171127
  Serious: Yes (Other)
  Sender: FDA-Public Use
  Company Number: FR-BAYER-2017-155552

PATIENT
  Age: 42 Year
  Sex: Female

DRUGS (1)
  1. MIRENA [Suspect]
     Active Substance: LEVONORGESTREL
     Indication: CONTRACEPTION
     Dosage: 20 MCG/24HR, CONT
     Route: 015
     Dates: start: 20080410, end: 20170704

REACTIONS (17)
  - Irritability [None]
  - Diffuse alopecia [None]
  - Loss of libido [None]
  - Skin discolouration [None]
  - Panic reaction [None]
  - Nervousness [None]
  - Hypertrichosis [None]
  - Weight increased [None]
  - Depressed mood [None]
  - Psoriasis [None]
  - Mood swings [None]
  - Eye irritation [None]
  - Vulvovaginal mycotic infection [None]
  - Vision blurred [None]
  - Abdominal pain lower [Unknown]
  - Breast pain [None]
  - Amnesia [None]

NARRATIVE: CASE EVENT DATE: 200904
